FAERS Safety Report 25361641 (Version 2)
Quarter: 2025Q3

REPORT INFORMATION
  Report Type: Spontaneous
  Country: US (occurrence: US)
  Receive Date: 20250527
  Receipt Date: 20250722
  Transmission Date: 20251020
  Serious: Yes (Hospitalization)
  Sender: ROCHE
  Company Number: US-ROCHE-10000290863

PATIENT
  Age: 1 Year
  Sex: Male
  Weight: 12.7 kg

DRUGS (2)
  1. HEMLIBRA [Suspect]
     Active Substance: EMICIZUMAB-KXWH
     Indication: Factor VIII deficiency
     Dosage: STRENGTH- 30MG/ML
     Route: 058
     Dates: start: 202409, end: 20250510
  2. HEMLIBRA [Suspect]
     Active Substance: EMICIZUMAB-KXWH
     Dosage: STRENGTH- 30MG/ML
     Route: 058
     Dates: start: 202409

REACTIONS (4)
  - Off label use [Unknown]
  - Haemorrhage [Unknown]
  - Haemorrhage [Unknown]
  - General physical health deterioration [Unknown]

NARRATIVE: CASE EVENT DATE: 20250501
